FAERS Safety Report 11557634 (Version 3)
Quarter: 2015Q4

REPORT INFORMATION
  Report Type: Spontaneous
  Country: US (occurrence: US)
  Receive Date: 20150927
  Receipt Date: 20151103
  Transmission Date: 20160304
  Serious: No
  Sender: FDA-Public Use
  Company Number: US-B.I. PHARMACEUTICALS,INC./RIDGEFIELD-2015-BI-50322BP

PATIENT
  Age: 86 Year
  Sex: Female
  Weight: 67 kg

DRUGS (3)
  1. SPIRIVA [Suspect]
     Active Substance: TIOTROPIUM BROMIDE MONOHYDRATE
     Indication: CHRONIC OBSTRUCTIVE PULMONARY DISEASE
     Dosage: 18 MCG
     Route: 055
  2. EYLEA [Concomitant]
     Active Substance: AFLIBERCEPT
     Indication: MACULAR DEGENERATION
     Route: 065
     Dates: start: 2013
  3. FLOVENT [Concomitant]
     Active Substance: FLUTICASONE PROPIONATE
     Indication: CHRONIC OBSTRUCTIVE PULMONARY DISEASE
     Dosage: FORMULATION : INHALATION SPRAY
     Route: 055

REACTIONS (11)
  - Asthenia [Recovered/Resolved]
  - Nightmare [Recovered/Resolved]
  - Agitation [Recovered/Resolved]
  - Lung disorder [Not Recovered/Not Resolved]
  - Nasal congestion [Not Recovered/Not Resolved]
  - Chest discomfort [Not Recovered/Not Resolved]
  - Confusional state [Recovered/Resolved]
  - Dyspnoea [Not Recovered/Not Resolved]
  - Aphonia [Recovered/Resolved]
  - Feeling hot [Not Recovered/Not Resolved]
  - Urinary tract infection [Recovered/Resolved]

NARRATIVE: CASE EVENT DATE: 201412
